FAERS Safety Report 6294638-7 (Version None)
Quarter: 2009Q3

REPORT INFORMATION
  Report Type: 
  Country: None (occurrence: None)
  Receive Date: 20090731
  Receipt Date: 20090731
  Transmission Date: 20100115
  Serious: No
  Sender: FDA-Public Use
  Company Number: None

PATIENT
  Age: 25 Year
  Sex: Female
  Weight: 49.4421 kg

DRUGS (2)
  1. METHYLPREDNISOLONE [Suspect]
     Indication: BACK PAIN
     Dosage: 4 MG DAILY PO
     Route: 048
     Dates: start: 20090728, end: 20090730
  2. ORTHO TRI-CYCLEN LO [Concomitant]

REACTIONS (2)
  - DYSPNOEA [None]
  - PRURITUS [None]
